FAERS Safety Report 8023823-9 (Version None)
Quarter: 2012Q1

REPORT INFORMATION
  Report Type: 
  Country: None (occurrence: None)
  Receive Date: 20120105
  Receipt Date: 20111228
  Transmission Date: 20120608
  Serious: Yes (Hospitalization, Other)
  Sender: FDA-Public Use
  Company Number: US-SANOFI-AVENTIS-2011SA085736

PATIENT
  Age: 86 Year
  Sex: Male

DRUGS (3)
  1. DIABETA [Suspect]
  2. ORAL BLOOD GLUCOSE LOWERING DRUGS [Concomitant]
     Indication: BLOOD GLUCOSE
  3. LANTUS [Concomitant]
     Indication: TYPE 2 DIABETES MELLITUS
     Dosage: DOSE:10 UNIT(S)

REACTIONS (2)
  - CARDIAC DISORDER [None]
  - BLOOD GLUCOSE INCREASED [None]
